FAERS Safety Report 6390867-2 (Version None)
Quarter: 2009Q4

REPORT INFORMATION
  Report Type: 
  Country: None (occurrence: None)
  Receive Date: 20091003
  Receipt Date: 20090919
  Transmission Date: 20100525
  Serious: Yes (Hospitalization, Other)
  Sender: FDA-Public Use
  Company Number: DSM-2009-01373

PATIENT
  Age: 42 Year
  Sex: Male
  Weight: 86 kg

DRUGS (2)
  1. SEVIKAR (OLMESARTAN MEDOXOMIL/AMLODIPINE BESILATE) [Suspect]
     Indication: ESSENTIAL HYPERTENSION
     Dosage: 20/5 MG, ORAL, 40/5 MG, ORAL
     Route: 048
     Dates: start: 20090217, end: 20090308
  2. SEVIKAR (OLMESARTAN MEDOXOMIL/AMLODIPINE BESILATE) [Suspect]
     Indication: ESSENTIAL HYPERTENSION
     Dosage: 20/5 MG, ORAL, 40/5 MG, ORAL
     Route: 048
     Dates: start: 20090309, end: 20090604

REACTIONS (1)
  - DIARRHOEA [None]
